FAERS Safety Report 11114452 (Version 1)
Quarter: 2015Q2

REPORT INFORMATION
  Report Type: Spontaneous
  Country: US (occurrence: US)
  Receive Date: 20150515
  Receipt Date: 20150515
  Transmission Date: 20150821
  Serious: Yes (Other)
  Sender: FDA-Public Use
  Company Number: US-BEH-2015050985

PATIENT
  Sex: Female

DRUGS (3)
  1. IVIG [Suspect]
     Active Substance: HUMAN IMMUNOGLOBULIN G
     Indication: IMMUNODEFICIENCY COMMON VARIABLE
     Dosage: IVIG
     Route: 042
  2. IVIG [Suspect]
     Active Substance: HUMAN IMMUNOGLOBULIN G
     Dosage: IVIG
     Route: 042
  3. HIZENTRA [Suspect]
     Active Substance: HUMAN IMMUNOGLOBULIN G
     Indication: IMMUNODEFICIENCY COMMON VARIABLE
     Route: 058

REACTIONS (8)
  - Headache [Unknown]
  - Migraine [Unknown]
  - Malaise [Unknown]
  - Meningitis aseptic [Unknown]
  - Vomiting [Unknown]
  - Photophobia [Unknown]
  - Activities of daily living impaired [Unknown]
  - Urticaria [Unknown]
